FAERS Safety Report 17731631 (Version 4)
Quarter: 2020Q2

REPORT INFORMATION
  Report Type: Spontaneous
  Country: FR (occurrence: FR)
  Receive Date: 20200501
  Receipt Date: 20200522
  Transmission Date: 20200714
  Serious: Yes (Hospitalization, Other)
  Sender: FDA-Public Use
  Company Number: FR-TAKEDA-2020TJP008703

PATIENT
  Age: 66 Year
  Sex: Male

DRUGS (3)
  1. LANZOR [Suspect]
     Active Substance: LANSOPRAZOLE
     Indication: PYLORIC STENOSIS
     Dosage: 15 MILLIGRAM, QD
     Route: 065
     Dates: start: 19950313
  2. LEVODOPA [Suspect]
     Active Substance: LEVODOPA
     Indication: PRODUCT USED FOR UNKNOWN INDICATION
     Dosage: UNK
     Route: 065
  3. MODOPAR [Suspect]
     Active Substance: BENSERAZIDE HYDROCHLORIDE\LEVODOPA
     Indication: CEREBELLAR INFARCTION
     Dosage: 125 MG, TID
     Route: 065
     Dates: start: 1994

REACTIONS (4)
  - Extrapyramidal disorder [Recovered/Resolved]
  - Myoclonus [Recovered/Resolved]
  - Drug interaction [Recovered/Resolved]
  - Encephalopathy [Recovered/Resolved]
